FAERS Safety Report 9175187 (Version 2)
Quarter: 2013Q1

REPORT INFORMATION
  Report Type: Spontaneous
  Country: VE (occurrence: VE)
  Receive Date: 20130320
  Receipt Date: 20130321
  Transmission Date: 20140127
  Serious: Yes (Hospitalization)
  Sender: FDA-Public Use
  Company Number: VE-ROCHE-1001764

PATIENT
  Age: 35 Year
  Sex: Female

DRUGS (5)
  1. XOLAIR [Suspect]
     Indication: ASTHMA
     Route: 058
     Dates: start: 201106
  2. XOLAIR [Suspect]
     Route: 065
     Dates: start: 20110913
  3. XOLAIR [Suspect]
     Route: 065
     Dates: end: 2012
  4. MONTELUKAST SODIUM [Concomitant]
     Route: 065
     Dates: end: 2012
  5. METICORTEN [Concomitant]
     Route: 065
     Dates: end: 2012

REACTIONS (2)
  - Asthma [Recovered/Resolved]
  - Emotional distress [Unknown]
